FAERS Safety Report 7547235-7 (Version None)
Quarter: 2011Q2

REPORT INFORMATION
  Report Type: 
  Country: None (occurrence: None)
  Receive Date: 20110524
  Receipt Date: 20110225
  Transmission Date: 20111010
  Serious: No
  Sender: FDA-Public Use
  Company Number: 028338

PATIENT
  Sex: Female

DRUGS (9)
  1. METOPROLOL TARTRATE [Concomitant]
  2. CIMZIA [Suspect]
     Indication: CROHN'S DISEASE
     Dosage: (400 MG 1X/2 WEEKS SUBCUTANEOUS)
     Route: 058
     Dates: start: 20110129
  3. TIOTROPIUM BROMIDE [Concomitant]
  4. ALLOPURINOL [Concomitant]
  5. SPIRONOLACTONE [Concomitant]
  6. LASIX [Concomitant]
  7. VERPAMIL HCL [Concomitant]
  8. WARFARIN SODIUM [Concomitant]
  9. POTASSIUM [Concomitant]

REACTIONS (5)
  - COUGH [None]
  - FEELING COLD [None]
  - DIZZINESS [None]
  - CHILLS [None]
  - DECREASED APPETITE [None]
